FAERS Safety Report 20290859 (Version 1)
Quarter: 2022Q1

REPORT INFORMATION
  Report Type: Other
  Country: US (occurrence: None)
  Receive Date: 20220104
  Receipt Date: 20220104
  Transmission Date: 20220424
  Serious: Yes (Other)
  Sender: FDA-Public Use
  Company Number: US-ROCHE-2990331

PATIENT
  Age: 43 Year
  Sex: Female

DRUGS (18)
  1. OCREVUS [Suspect]
     Active Substance: OCRELIZUMAB
     Indication: Multiple sclerosis
     Dosage: DOT:   2019-02-06, 2019-08-30, 2020-05-12,  2020-12-06,  2021-10-08
     Route: 065
  2. AZELASTINE [Concomitant]
     Active Substance: AZELASTINE
  3. BETAMETHASONE [Concomitant]
     Active Substance: BETAMETHASONE
  4. BACLOFEN [Concomitant]
     Active Substance: BACLOFEN
  5. CLOTRIMAZOLE [Concomitant]
     Active Substance: CLOTRIMAZOLE
  6. DANTROLENE [Concomitant]
     Active Substance: DANTROLENE
  7. DICLOFENAC [Concomitant]
     Active Substance: DICLOFENAC
  8. ERGOCALCIFEROL [Concomitant]
     Active Substance: ERGOCALCIFEROL
  9. FLUCONAZOLE [Concomitant]
     Active Substance: FLUCONAZOLE
  10. FLUTICASONE PROPIONATE [Concomitant]
     Active Substance: FLUTICASONE PROPIONATE
  11. GABAPENTIN [Concomitant]
     Active Substance: GABAPENTIN
  12. LORATADINE [Concomitant]
     Active Substance: LORATADINE
  13. LUBIPROSTONE [Concomitant]
     Active Substance: LUBIPROSTONE
  14. MAGNESIUM CITRATE [Concomitant]
     Active Substance: MAGNESIUM CITRATE
  15. NITROFURANTOIN MONOHYDRATE [Concomitant]
     Active Substance: NITROFURANTOIN MONOHYDRATE
  16. POLYETHYLENE GLYCOL [Concomitant]
     Active Substance: POLYETHYLENE GLYCOL
  17. TAMSULOSIN [Concomitant]
     Active Substance: TAMSULOSIN
  18. TERBINAFINE [Concomitant]
     Active Substance: TERBINAFINE

REACTIONS (3)
  - Urinary tract infection [Unknown]
  - Urinary hesitation [Unknown]
  - Immunosuppression [Unknown]

NARRATIVE: CASE EVENT DATE: 20190520
